FAERS Safety Report 9994965 (Version 3)
Quarter: 2014Q3

REPORT INFORMATION
  Report Type: Spontaneous
  Country: US (occurrence: None)
  Receive Date: 20140306
  Receipt Date: 20140808
  Transmission Date: 20150326
  Serious: Yes (Hospitalization)
  Sender: FDA-Public Use
  Company Number: AUR-APL-2014-02352

PATIENT
  Age: 59 Year
  Sex: Male

DRUGS (4)
  1. AMLODIPINE BESYLATE TABLETS 2.5 MG (AMLODIPINE) [Suspect]
     Active Substance: AMLODIPINE BESYLATE
     Indication: PRODUCT USED FOR UNKNOWN INDICATION
     Dosage: SINGLE (30 DOSAGE FORMS), UNKNOWN
  2. METFORMIN HYDROCHLORIDE TABLETS USP 500 MG (METFORMIN) TABLET [Suspect]
     Active Substance: METFORMIN HYDROCHLORIDE
     Indication: PRODUCT USED FOR UNKNOWN INDICATION
     Dosage: SINGLE (60 DOSAGE FORMS), UNKNOWN
  3. SIMVASTATIN TABLETS USP 5 MG (SIMVASTATIN) TABLET, 5MG [Suspect]
     Active Substance: SIMVASTATIN
     Indication: PRODUCT USED FOR UNKNOWN INDICATION
  4. LISINOPRIL TABLETS USP 10 MG (LISINOPRIL) TABLET, 10 MG [Suspect]
     Active Substance: LISINOPRIL
     Indication: PRODUCT USED FOR UNKNOWN INDICATION
     Dosage: SINGLE (30 DOSAGE FORMS), UNKNOWN

REACTIONS (10)
  - Renal failure acute [None]
  - Hypoglycaemia [None]
  - Toxicity to various agents [None]
  - Cardiogenic shock [None]
  - Lactic acidosis [None]
  - Suicide attempt [None]
  - Metabolic acidosis [None]
  - Intentional overdose [None]
  - Bradycardia [None]
  - Cardiac arrest [None]
